FAERS Safety Report 5825631-3 (Version None)
Quarter: 2008Q3

REPORT INFORMATION
  Report Type: 
  Country: None (occurrence: None)
  Receive Date: 20080729
  Receipt Date: 20080721
  Transmission Date: 20090109
  Serious: Yes (Other)
  Sender: FDA-Public Use
  Company Number: B0530590A

PATIENT
  Age: 13 Year
  Sex: Male
  Weight: 40 kg

DRUGS (2)
  1. LAMICTAL [Suspect]
     Dosage: 300MG PER DAY
  2. SELEN PLUS [Suspect]
     Indication: DRUG USE FOR UNKNOWN INDICATION
     Dosage: 200MCG PER DAY
     Route: 048
     Dates: start: 20080706, end: 20080701

REACTIONS (2)
  - DRUG INTERACTION [None]
  - EPILEPSY [None]
